FAERS Safety Report 14234303 (Version 2)
Quarter: 2017Q4

REPORT INFORMATION
  Report Type: Spontaneous
  Country: US (occurrence: US)
  Receive Date: 20171129
  Receipt Date: 20171129
  Transmission Date: 20180321
  Serious: Yes (Other)
  Sender: FDA-Public Use
  Company Number: US-CELGENEUS-USA-20171106769

PATIENT
  Age: 51 Year
  Sex: Male

DRUGS (1)
  1. THALOMID [Suspect]
     Active Substance: THALIDOMIDE
     Indication: PLASMA CELL MYELOMA
     Dosage: 100 MILLIGRAM
     Route: 048
     Dates: start: 20171020

REACTIONS (2)
  - Dyspnoea [Not Recovered/Not Resolved]
  - Paranasal sinus haemorrhage [Not Recovered/Not Resolved]

NARRATIVE: CASE EVENT DATE: 20171120
